FAERS Safety Report 6605042-3 (Version None)
Quarter: 2010Q1

REPORT INFORMATION
  Report Type: 
  Country: None (occurrence: None)
  Receive Date: 20100226
  Receipt Date: 20100222
  Transmission Date: 20100710
  Serious: Yes (Other)
  Sender: FDA-Public Use
  Company Number: US-TEVA-225299USA

PATIENT
  Sex: Female

DRUGS (2)
  1. CLARAVIS [Suspect]
     Route: 048
     Dates: start: 20090601, end: 20100120
  2. EUGYNON [Concomitant]
     Indication: CONTRACEPTION
     Route: 048

REACTIONS (1)
  - UNINTENDED PREGNANCY [None]
